FAERS Safety Report 26217505 (Version 1)
Quarter: 2025Q4

REPORT INFORMATION
  Report Type: Spontaneous
  Country: EU (occurrence: EU)
  Receive Date: 20251231
  Receipt Date: 20251231
  Transmission Date: 20260117
  Serious: Yes (Hospitalization)
  Sender: MYLAN
  Company Number: EU-MYLANLABS-2025M1110309

PATIENT
  Age: 52 Year
  Sex: Male

DRUGS (7)
  1. HYDROCORTISONE [Suspect]
     Active Substance: HYDROCORTISONE
     Indication: Immunodeficiency common variable
     Dosage: 100 MILLIGRAM, Q6H
  2. HYDROCORTISONE [Suspect]
     Active Substance: HYDROCORTISONE
     Indication: Autoimmune enteropathy
  3. Immunoglobulin [Concomitant]
     Indication: Hypogammaglobulinaemia
     Dosage: UNK
  4. IVERMECTIN [Concomitant]
     Active Substance: IVERMECTIN
     Indication: Strongyloidiasis
     Dosage: 200 MICROGRAM/KILOGRAM, TWO DOSES
  5. IVERMECTIN [Concomitant]
     Active Substance: IVERMECTIN
     Dosage: 200 MICROGRAM/KILOGRAM, THREE DOSES
  6. ALBENDAZOLE [Concomitant]
     Active Substance: ALBENDAZOLE
     Indication: Strongyloidiasis
     Dosage: 400 MILLIGRAM, BID, FOUR DOSES
  7. IVERMECTIN [Concomitant]
     Active Substance: IVERMECTIN
     Indication: Strongyloidiasis
     Dosage: 200 MICROGRAM/KILOGRAM, QW, FOUR DOSES

REACTIONS (1)
  - Drug ineffective [Unknown]
